FAERS Safety Report 6190964-0 (Version None)
Quarter: 2009Q2

REPORT INFORMATION
  Report Type: 
  Country: None (occurrence: None)
  Receive Date: 20090513
  Receipt Date: 20090428
  Transmission Date: 20091009
  Serious: Yes (Death)
  Sender: FDA-Public Use
  Company Number: 2009001292

PATIENT
  Age: 56 Year
  Sex: Female

DRUGS (1)
  1. ERLOTINIB(ERLOTINIB)(TABLET)(ERLOTINIB) [Suspect]
     Indication: LUNG NEOPLASM MALIGNANT
     Dosage: (150 MG,QD), ORAL
     Route: 048
     Dates: start: 20081106

REACTIONS (1)
  - DEATH [None]
